FAERS Safety Report 5907880-9 (Version None)
Quarter: 2008Q4

REPORT INFORMATION
  Report Type: 
  Country: None (occurrence: None)
  Receive Date: 20081003
  Receipt Date: 20080922
  Transmission Date: 20090506
  Serious: Yes (Death, Hospitalization, Other)
  Sender: FDA-Public Use
  Company Number: DK-PFIZER INC-2008063851

PATIENT
  Sex: Male

DRUGS (10)
  1. ZYVOXID [Suspect]
     Indication: ENDOCARDITIS
     Dates: start: 20080709, end: 20080724
  2. VANCOMYCIN HYDROCHLORIDE [Concomitant]
     Route: 042
     Dates: start: 20080626, end: 20080709
  3. CITALOPRAM HYDROBROMIDE [Concomitant]
  4. FLUCONAZOLE [Concomitant]
  5. FLUTICASONE PROPIONATE [Concomitant]
  6. IBUMETIN [Concomitant]
  7. CREON [Concomitant]
  8. MYCOSTATIN [Concomitant]
  9. ACETAMINOPHEN [Concomitant]
  10. SEREVENT [Concomitant]

REACTIONS (2)
  - CARDIAC FAILURE [None]
  - THROMBOCYTOPENIA [None]
